FAERS Safety Report 16115917 (Version 1)
Quarter: 2019Q2

REPORT INFORMATION
  Report Type: Spontaneous
  Country: US (occurrence: US)
  Receive Date: 20190325
  Receipt Date: 20190325
  Transmission Date: 20190711
  Serious: No
  Sender: FDA-Public Use
  Company Number: None

PATIENT
  Age: 45 Year
  Sex: Female
  Weight: 67.5 kg

DRUGS (2)
  1. FLONASE SENSIMIST ALLERGY RELIEF [Suspect]
     Active Substance: FLUTICASONE FUROATE
     Indication: OROPHARYNGEAL PAIN
     Dosage: ?          OTHER STRENGTH:MCG;QUANTITY:60 SPRAY(S);?
     Route: 045
     Dates: start: 20190324, end: 20190325
  2. VITAMIN B12 [Concomitant]
     Active Substance: CYANOCOBALAMIN

REACTIONS (1)
  - Swelling face [None]

NARRATIVE: CASE EVENT DATE: 20190325
